FAERS Safety Report 6035611-3 (Version None)
Quarter: 2009Q1

REPORT INFORMATION
  Report Type: 
  Country: None (occurrence: None)
  Receive Date: 20090113
  Receipt Date: 20090105
  Transmission Date: 20090719
  Serious: Yes (Other)
  Sender: FDA-Public Use
  Company Number: PHEH2008US11005

PATIENT
  Sex: Male

DRUGS (2)
  1. EXELON [Suspect]
     Indication: AMNESIA
     Route: 062
  2. EXELON [Suspect]
     Indication: DEMENTIA ALZHEIMER'S TYPE
     Route: 048

REACTIONS (11)
  - ABDOMINAL PAIN UPPER [None]
  - APPLICATION SITE ERYTHEMA [None]
  - BRADYCARDIA [None]
  - CARDIAC PACEMAKER INSERTION [None]
  - CHRONIC LYMPHOCYTIC LEUKAEMIA [None]
  - DISCOMFORT [None]
  - ENDOSCOPY ABNORMAL [None]
  - PAIN [None]
  - PEPTIC ULCER [None]
  - PRURITUS [None]
  - SCAR [None]
